FAERS Safety Report 6939487-9 (Version None)
Quarter: 2010Q3

REPORT INFORMATION
  Report Type: 
  Country: None (occurrence: None)
  Receive Date: 20100820
  Receipt Date: 20100809
  Transmission Date: 20110219
  Serious: Yes (Life-Threatening, Hospitalization)
  Sender: FDA-Public Use
  Company Number: AUR-APL-2010-01799

PATIENT
  Age: 75 Year
  Sex: Male

DRUGS (5)
  1. METOPROLOL TARTRATE [Suspect]
     Indication: CARDIAC FAILURE
     Dosage: 100 MG DAILY UNK
  2. RAMIPRIL [Suspect]
     Indication: CARDIAC FAILURE
     Dosage: 10MG DAILY UNK
  3. SPIRONOLACTONE [Suspect]
     Indication: CARDIAC FAILURE
     Dosage: 25 MG DAILY
  4. BUMETANIDE [Concomitant]
  5. DIGITOXIN [Concomitant]

REACTIONS (6)
  - BRADYCARDIA [None]
  - CARDIOGENIC SHOCK [None]
  - DRUG INTERACTION [None]
  - HAEMODIALYSIS [None]
  - METABOLIC ACIDOSIS [None]
  - RENAL FAILURE ACUTE [None]
